FAERS Safety Report 7711269-X (Version None)
Quarter: 2011Q3

REPORT INFORMATION
  Report Type: 
  Country: None (occurrence: None)
  Receive Date: 20110826
  Receipt Date: 20110822
  Transmission Date: 20111222
  Serious: Yes (Death)
  Sender: FDA-Public Use
  Company Number: US-SHIRE-ALL1-2011-02873

PATIENT
  Sex: Female
  Weight: 49.887 kg

DRUGS (7)
  1. LIALDA [Suspect]
     Indication: COLITIS ULCERATIVE
     Dosage: 1.2 G, 2X/DAY:BID
     Route: 048
     Dates: end: 20110601
  2. VITAMIN B12                        /00056201/ [Concomitant]
     Indication: VITAMIN SUPPLEMENTATION
     Dosage: UNK UNK, 1X/DAY:QD
     Route: 048
  3. LIALDA [Suspect]
     Dosage: 1.2 G, 4X/DAY:QID
     Route: 048
     Dates: start: 20110601
  4. LEVOTHYROXINE SODIUM [Concomitant]
     Indication: THYROID DISORDER
     Dosage: 50 ?G, 1X/DAY:QD
     Route: 048
  5. AGGRENOX [Concomitant]
     Indication: HYPERTENSION
     Dosage: UNK (25/200 MG), 2X/DAY:BID
     Route: 048
     Dates: start: 20110101
  6. VITAMIN D [Concomitant]
     Indication: VITAMIN SUPPLEMENTATION
     Dosage: UNK UNK, 1X/DAY:QD
     Route: 048
  7. AMLODIPINE [Concomitant]
     Indication: HYPERTENSION
     Dosage: 5 MG, 1X/DAY:QD
     Route: 048

REACTIONS (5)
  - RECTAL HAEMORRHAGE [None]
  - CARDIAC FAILURE CONGESTIVE [None]
  - HAEMORRHOIDS [None]
  - DIARRHOEA [None]
  - INAPPROPRIATE SCHEDULE OF DRUG ADMINISTRATION [None]
